FAERS Safety Report 15888445 (Version 3)
Quarter: 2019Q1

REPORT INFORMATION
  Report Type: Spontaneous
  Country: JP (occurrence: JP)
  Receive Date: 20190130
  Receipt Date: 20190228
  Transmission Date: 20190417
  Serious: Yes (Other)
  Sender: FDA-Public Use
  Company Number: JP-ROCHE-2255067

PATIENT
  Age: 58 Year
  Sex: Female

DRUGS (6)
  1. PREDONINE [Concomitant]
     Active Substance: PREDNISOLONE
     Route: 065
  2. CALONAL [Concomitant]
     Active Substance: ACETAMINOPHEN
     Indication: INFLUENZA
     Route: 048
     Dates: start: 20190108, end: 20190108
  3. ADETPHOS [Concomitant]
     Active Substance: ADENOSINE TRIPHOSPHATE
     Route: 065
     Dates: start: 20190116
  4. GASLON [Concomitant]
     Active Substance: IRSOGLADINE MALEATE
     Route: 065
     Dates: start: 20190116
  5. XOFLUZA [Suspect]
     Active Substance: BALOXAVIR MARBOXIL
     Indication: INFLUENZA
     Route: 048
     Dates: start: 20190108, end: 20190108
  6. ATORVASTATIN [Concomitant]
     Active Substance: ATORVASTATIN
     Indication: DYSLIPIDAEMIA
     Route: 048

REACTIONS (2)
  - Decreased appetite [Unknown]
  - Facial paralysis [Not Recovered/Not Resolved]

NARRATIVE: CASE EVENT DATE: 20190116
